FAERS Safety Report 6195041-0 (Version None)
Quarter: 2009Q2

REPORT INFORMATION
  Report Type: 
  Country: None (occurrence: None)
  Receive Date: 20090515
  Receipt Date: 20090515
  Transmission Date: 20091009
  Serious: No
  Sender: FDA-Public Use
  Company Number: None

PATIENT
  Age: 37 Year
  Sex: Male

DRUGS (1)
  1. DOXORUBICIN HCL [Suspect]
     Indication: LEUKAEMIA
     Dosage: 123 MG X1 IV
     Route: 042
     Dates: start: 20081213, end: 20081213

REACTIONS (1)
  - ATRIAL FIBRILLATION [None]
